FAERS Safety Report 4645456-4 (Version None)
Quarter: 2005Q2

REPORT INFORMATION
  Report Type: 
  Country: None (occurrence: None)
  Receive Date: 20050426
  Receipt Date: 20050419
  Transmission Date: 20051028
  Serious: Yes (Death)
  Sender: FDA-Public Use
  Company Number: NL-MERCK-0504NLD00023

PATIENT
  Age: 45 Year
  Sex: Male

DRUGS (3)
  1. ZOCOR [Suspect]
     Route: 048
     Dates: start: 19970701
  2. SIMVASTATIN [Suspect]
     Route: 048
  3. ASPIRIN [Concomitant]
     Route: 048
     Dates: start: 19970701

REACTIONS (2)
  - DEATH [None]
  - HEPATITIS CHOLESTATIC [None]
